FAERS Safety Report 11318792 (Version 1)
Quarter: 2015Q3

REPORT INFORMATION
  Report Type: Spontaneous
  Country: KR (occurrence: KR)
  Receive Date: 20150729
  Receipt Date: 20150729
  Transmission Date: 20151125
  Serious: Yes (Hospitalization)
  Sender: FDA-Public Use
  Company Number: KR-AMGEN-KORCT2015075398

PATIENT
  Age: 38 Year
  Sex: Male

DRUGS (51)
  1. RITUXIMAB [Concomitant]
     Active Substance: RITUXIMAB
     Dosage: 835 MG, UNK
     Route: 042
     Dates: start: 20150409, end: 20150409
  2. DOXORUBICIN [Concomitant]
     Active Substance: DOXORUBICIN
     Dosage: 110 MG, UNK
     Route: 042
     Dates: start: 20150409, end: 20150409
  3. DOXORUBICIN [Concomitant]
     Active Substance: DOXORUBICIN
     Dosage: 110 MG, UNK
     Route: 042
     Dates: start: 20150430, end: 20150430
  4. VINCRISTINE [Concomitant]
     Active Substance: VINCRISTINE
     Dosage: 2 MG, UNK
     Route: 042
     Dates: start: 20150612, end: 20150612
  5. CYCLOPHOSPHAMIDE. [Concomitant]
     Active Substance: CYCLOPHOSPHAMIDE
     Dosage: 1250 MG, UNK
     Route: 042
     Dates: start: 20150612, end: 20150612
  6. LINAGLIPTIN [Concomitant]
     Active Substance: LINAGLIPTIN
     Dosage: 5 MG, UNK
     Route: 048
     Dates: start: 20150506
  7. CINACALCET HCL [Concomitant]
     Active Substance: CINACALCET HYDROCHLORIDE
     Dosage: 75 MG, UNK
     Route: 048
     Dates: start: 20150107
  8. MANIDIPINE [Concomitant]
     Active Substance: MANIDIPINE
     Dosage: 20 MG, UNK
     Route: 048
     Dates: start: 20120111
  9. PANTOPRAZOLE SODIUM. [Concomitant]
     Active Substance: PANTOPRAZOLE SODIUM
     Dosage: 40 MG, UNK
     Route: 042
     Dates: start: 20150425, end: 20150625
  10. EMEND [Concomitant]
     Active Substance: APREPITANT
     Dosage: 80 MG, UNK
     Route: 048
     Dates: start: 20150410, end: 20150614
  11. RITUXIMAB [Concomitant]
     Active Substance: RITUXIMAB
     Dosage: 835 MG, UNK
     Route: 042
     Dates: start: 20150430, end: 20150430
  12. DOXORUBICIN [Concomitant]
     Active Substance: DOXORUBICIN
     Dosage: 110 MG, UNK
     Route: 042
     Dates: start: 20150521, end: 20150521
  13. VINCRISTINE [Concomitant]
     Active Substance: VINCRISTINE
     Dosage: 2 MG, UNK
     Route: 042
     Dates: start: 20150409, end: 20150409
  14. DARBEPOETIN ALFA [Concomitant]
     Active Substance: DARBEPOETIN ALFA
     Dosage: 120 MUG, UNK
     Route: 042
     Dates: start: 20150401, end: 20150408
  15. CEFTAZIDIME. [Concomitant]
     Active Substance: CEFTAZIDIME
     Dosage: 2 G, UNK
     Route: 042
     Dates: start: 20150427, end: 20150506
  16. METOCLOPRAMIDE HCL [Concomitant]
     Active Substance: METOCLOPRAMIDE HYDROCHLORIDE
     Dosage: 30 MG, UNK
     Route: 042
     Dates: start: 20150425, end: 20150505
  17. POLYSTYRENE SULFONATE CALCIUM [Concomitant]
     Active Substance: CALCIUM POLYSTYRENE SULFONATE
     Dosage: 2 PK
     Route: 048
     Dates: start: 20101011
  18. SETORAM [Concomitant]
     Dosage: 10 MG, UNK
     Route: 048
     Dates: start: 20140709, end: 20150510
  19. RITUXIMAB [Concomitant]
     Active Substance: RITUXIMAB
     Dosage: 835 MG, UNK
     Route: 042
     Dates: start: 20150612, end: 20150612
  20. DOXORUBICIN [Concomitant]
     Active Substance: DOXORUBICIN
     Dosage: 83 MG, UNK
     Route: 042
     Dates: start: 20150612, end: 20150612
  21. FLUCONAZOLE. [Concomitant]
     Active Substance: FLUCONAZOLE
     Dosage: 200 MG, UNK
     Route: 048
     Dates: start: 20150416
  22. SEVELAMER HCL [Concomitant]
     Dosage: 2400 MG, UNK
     Route: 048
     Dates: start: 20130516
  23. G-LASTA [Suspect]
     Active Substance: PEGFILGRASTIM
     Indication: FEBRILE NEUTROPENIA
     Dosage: 6 MG, 1X/3WEEKS
     Route: 058
     Dates: start: 20150410
  24. CYCLOPHOSPHAMIDE. [Concomitant]
     Active Substance: CYCLOPHOSPHAMIDE
     Dosage: 1250 MG, UNK
     Route: 042
     Dates: start: 20150409, end: 20150409
  25. CYCLOPHOSPHAMIDE. [Concomitant]
     Active Substance: CYCLOPHOSPHAMIDE
     Dosage: 1250 MG, UNK
     Route: 042
     Dates: start: 20150430, end: 20150430
  26. CYCLOPHOSPHAMIDE. [Concomitant]
     Active Substance: CYCLOPHOSPHAMIDE
     Dosage: 1250 MG, UNK
     Route: 042
     Dates: start: 20150521, end: 20150521
  27. PREDNISOLONE. [Concomitant]
     Active Substance: PREDNISOLONE
     Dosage: 130 MG, UNK
     Route: 048
     Dates: start: 20150430, end: 20150504
  28. PREDNISOLONE. [Concomitant]
     Active Substance: PREDNISOLONE
     Dosage: 130 MG, UNK
     Route: 048
     Dates: start: 20150612, end: 20150616
  29. MOSAPRIDE CITRATE [Concomitant]
     Active Substance: MOSAPRIDE CITRATE
     Dosage: 15 MG, UNK
     Route: 048
     Dates: start: 20150416
  30. FERROUS SULFATE ANHYDROUS. [Concomitant]
     Active Substance: FERROUS SULFATE ANHYDROUS
     Dosage: 160 MG, UNK
     Route: 048
     Dates: start: 20130524
  31. SMECTITE [Concomitant]
     Active Substance: MONTMORILLONITE
     Dosage: 60 ML, UNK
     Route: 048
     Dates: start: 20150602, end: 20150602
  32. APREPITANT. [Concomitant]
     Active Substance: APREPITANT
     Dosage: 125 MG, UNK
     Route: 048
     Dates: start: 20150409, end: 20150612
  33. AMINO ACID [Concomitant]
     Dosage: 500 ML, UNK
     Route: 042
     Dates: start: 20150423, end: 20150423
  34. VINCRISTINE [Concomitant]
     Active Substance: VINCRISTINE
     Dosage: 2 MG, UNK
     Route: 042
     Dates: start: 20150430, end: 20150430
  35. G-LASTA [Suspect]
     Active Substance: PEGFILGRASTIM
     Dosage: 6 MG, 1X/3WEEKS
     Route: 058
     Dates: start: 20150501
  36. G-LASTA [Suspect]
     Active Substance: PEGFILGRASTIM
     Dosage: 6 MG, 1X/3WEEKS
     Route: 058
     Dates: start: 20150522
  37. PREDNISOLONE. [Concomitant]
     Active Substance: PREDNISOLONE
     Dosage: 130 MG, UNK
     Route: 048
     Dates: start: 20150521, end: 20150525
  38. COTRIMOXAZOLE [Concomitant]
     Active Substance: SULFAMETHOXAZOLE\TRIMETHOPRIM
     Dosage: 1 TAB
     Route: 048
     Dates: start: 20150416
  39. MEGESTROL ACETATE. [Concomitant]
     Active Substance: MEGESTROL ACETATE
     Dosage: 1 PK
     Route: 048
     Dates: start: 20150416
  40. IRBESARTAN. [Concomitant]
     Active Substance: IRBESARTAN
     Dosage: 300 MG, UNK
     Route: 048
     Dates: start: 20100111
  41. ARONAMIN C PLUS [Concomitant]
     Dosage: 1 TAB
     Route: 048
     Dates: start: 20110309
  42. PALONOSETRON [Concomitant]
     Active Substance: PALONOSETRON
     Dosage: 0.25 MG, UNK
     Route: 042
     Dates: start: 20150420, end: 20150420
  43. RITUXIMAB [Concomitant]
     Active Substance: RITUXIMAB
     Dosage: 835 MG, UNK
     Route: 042
     Dates: start: 20150521, end: 20150521
  44. VINCRISTINE [Concomitant]
     Active Substance: VINCRISTINE
     Dosage: 2 MG, UNK
     Route: 042
     Dates: start: 20150521, end: 20150521
  45. PREDNISOLONE. [Concomitant]
     Active Substance: PREDNISOLONE
     Dosage: 130 MG, UNK
     Route: 048
     Dates: start: 20150409, end: 20150413
  46. ESOMEPRAZOLE [Concomitant]
     Active Substance: ESOMEPRAZOLE
     Dosage: 20 MG, UNK
     Route: 048
     Dates: start: 20150506
  47. SULODEXIDE [Concomitant]
     Active Substance: SULODEXIDE
     Dosage: 2 CAP
     Route: 048
     Dates: start: 20140409
  48. SERUM ALBUMIN HUMAN [Concomitant]
     Dosage: 100 ML, UNK
     Route: 042
     Dates: start: 20150425, end: 20150624
  49. CARVEDILOL. [Concomitant]
     Active Substance: CARVEDILOL
     Dosage: 50 MG, UNK
     Route: 048
     Dates: start: 20101208, end: 20150623
  50. G-LASTA [Suspect]
     Active Substance: PEGFILGRASTIM
     Dosage: 6 MG, 1X/3WEEKS
     Route: 058
     Dates: start: 20150613
  51. LANTHANUM CARBONATE. [Concomitant]
     Active Substance: LANTHANUM CARBONATE
     Dosage: 2250 MG, UNK
     Route: 048
     Dates: start: 20131006

REACTIONS (2)
  - Atypical pneumonia [Recovered/Resolved]
  - Abdominal pain [Recovered/Resolved]

NARRATIVE: CASE EVENT DATE: 20150423
